FAERS Safety Report 24117616 (Version 2)
Quarter: 2025Q2

REPORT INFORMATION
  Report Type: Spontaneous
  Country: US (occurrence: US)
  Receive Date: 20240722
  Receipt Date: 20250429
  Transmission Date: 20250716
  Serious: Yes (Other)
  Sender: SANOFI AVENTIS
  Company Number: US-SANOFI-02137382

PATIENT
  Age: 63 Year
  Sex: Female

DRUGS (1)
  1. APIDRA SOLOSTAR [Suspect]
     Active Substance: INSULIN GLULISINE
     Indication: Diabetes mellitus

REACTIONS (5)
  - Neoplasm malignant [Unknown]
  - Diabetes mellitus inadequate control [Unknown]
  - Product storage error [Unknown]
  - Head discomfort [Unknown]
  - Thinking abnormal [Unknown]
